FAERS Safety Report 5645356-7 (Version None)
Quarter: 2008Q1

REPORT INFORMATION
  Report Type: 
  Country: None (occurrence: None)
  Receive Date: 20080229
  Receipt Date: 20080225
  Transmission Date: 20080703
  Serious: Yes (Hospitalization)
  Sender: FDA-Public Use
  Company Number: B0510176A

PATIENT
  Age: 57 Year
  Sex: Female
  Weight: 72.5 kg

DRUGS (3)
  1. LAPATINIB [Suspect]
     Dosage: 1250MG PER DAY
     Dates: start: 20071129, end: 20080220
  2. EPIRUBICIN [Suspect]
     Dosage: 136MG PER DAY
     Dates: start: 20071129, end: 20080130
  3. CIPRAMIL [Concomitant]
     Dosage: 30MGS PER DAY
     Dates: start: 20060101

REACTIONS (1)
  - CATHETER SITE INFECTION [None]
